FAERS Safety Report 18795194 (Version 3)
Quarter: 2021Q3

REPORT INFORMATION
  Report Type: Spontaneous
  Country: US (occurrence: US)
  Receive Date: 20210127
  Receipt Date: 20210804
  Transmission Date: 20211014
  Serious: No
  Sender: FDA-Public Use
  Company Number: US-PARATEK PHARMACEUTICALS, INC.-2020PTK00255

PATIENT
  Age: 83 Year
  Sex: Female

DRUGS (4)
  1. UNSPECIFIED MEDICATION [Suspect]
     Active Substance: UNSPECIFIED INGREDIENT
  2. NUZYRA [Suspect]
     Active Substance: OMADACYCLINE
     Indication: MYCOBACTERIAL INFECTION
     Dosage: 150 MG, 3X/WEEK
     Route: 048
     Dates: start: 20200918, end: 2021
  3. UNSPECIFIED MEDICATION [Suspect]
     Active Substance: UNSPECIFIED INGREDIENT
  4. UNSPECIFIED MEDICATION [Suspect]
     Active Substance: UNSPECIFIED INGREDIENT

REACTIONS (4)
  - Dizziness [Unknown]
  - Drug ineffective for unapproved indication [Recovered/Resolved]
  - Diarrhoea [Unknown]
  - Dysphonia [Unknown]

NARRATIVE: CASE EVENT DATE: 2020
